FAERS Safety Report 9604354 (Version 1)
Quarter: 2013Q4

REPORT INFORMATION
  Report Type: Spontaneous
  Country: FR (occurrence: FR)
  Receive Date: 20131008
  Receipt Date: 20131008
  Transmission Date: 20140711
  Serious: Yes (Other)
  Sender: FDA-Public Use
  Company Number: PHHY2013FR111774

PATIENT
  Sex: Female

DRUGS (1)
  1. VOTUBIA [Suspect]
     Indication: ANGIOMYOLIPOMA

REACTIONS (1)
  - Breast cancer [Unknown]
